FAERS Safety Report 6852220-4 (Version None)
Quarter: 2010Q3

REPORT INFORMATION
  Report Type: 
  Country: None (occurrence: None)
  Receive Date: 20100717
  Receipt Date: 20071110
  Transmission Date: 20110219
  Serious: No
  Sender: FDA-Public Use
  Company Number: US-PFIZER INC-2007094429

PATIENT
  Sex: Female
  Weight: 60.454 kg

DRUGS (11)
  1. CHANTIX [Suspect]
     Indication: SMOKING CESSATION THERAPY
     Dates: start: 20071001
  2. CENTRUM [Concomitant]
  3. CITALOPRAM HYDROBROMIDE [Concomitant]
  4. NAPROXEN [Concomitant]
  5. TIZANIDINE HCL [Concomitant]
  6. SIMVASTATIN [Concomitant]
  7. LORAZEPAM [Concomitant]
  8. OXYCODONE HCL [Concomitant]
  9. ALL OTHER THERAPEUTIC PRODUCTS [Concomitant]
  10. DETROL LA [Concomitant]
  11. LIDODERM [Concomitant]

REACTIONS (2)
  - NAUSEA [None]
  - VOMITING [None]
